FAERS Safety Report 15103902 (Version 4)
Quarter: 2018Q4

REPORT INFORMATION
  Report Type: Spontaneous
  Country: FR (occurrence: FR)
  Receive Date: 20180703
  Receipt Date: 20181015
  Transmission Date: 20190204
  Serious: Yes (Hospitalization)
  Sender: FDA-Public Use
  Company Number: FR-FERRINGPH-2018FE03254

PATIENT

DRUGS (8)
  1. HYDROCORTISONE ROUSSEL             /00028601/ [Concomitant]
     Active Substance: HYDROCORTISONE
     Indication: PRODUCT USED FOR UNKNOWN INDICATION
     Dosage: 15 MG, DAILY (10 MG IN THE MORNING AND 5 MG IN THE EVENING)
     Route: 048
  2. MINIRINMELT [Suspect]
     Active Substance: DESMOPRESSIN ACETATE
     Indication: DIABETES INSIPIDUS
     Dosage: 60 ?G, DAILY (MORNING)
     Route: 048
     Dates: start: 2016
  3. DOLIPRANE [Concomitant]
     Active Substance: ACETAMINOPHEN
     Indication: PRODUCT USED FOR UNKNOWN INDICATION
     Dosage: 500 MG, 4 TIMES DAILY
     Route: 048
  4. MINIRINMELT [Suspect]
     Active Substance: DESMOPRESSIN ACETATE
     Dosage: 120 ?G, 1 TIME DAILY (EVENING)
     Route: 048
     Dates: start: 2016
  5. NORDITROPINE [Concomitant]
     Active Substance: SOMATROPIN
     Dosage: 1.65 MG, DAILY FOR 7 DAYS
     Route: 065
  6. LEVOTHYROX [Concomitant]
     Active Substance: LEVOTHYROXINE
     Indication: PRODUCT USED FOR UNKNOWN INDICATION
     Dosage: 1 DF, 1 TIME DAILY (MORNING)
     Route: 048
  7. NORDITROPINE [Concomitant]
     Active Substance: SOMATROPIN
     Indication: PRODUCT USED FOR UNKNOWN INDICATION
     Dosage: 1.95 MG, DAILY FOR 7 DAYS
     Route: 065
  8. NORDITROPINE [Concomitant]
     Active Substance: SOMATROPIN
     Dosage: 1 MG, DAILY, FOR 7 DAYS
     Route: 065

REACTIONS (12)
  - Fatigue [Not Recovered/Not Resolved]
  - Urine output increased [Not Recovered/Not Resolved]
  - Headache [Not Recovered/Not Resolved]
  - Product quality issue [Unknown]
  - Swelling [Unknown]
  - Abdominal pain [Not Recovered/Not Resolved]
  - Oedema [Not Recovered/Not Resolved]
  - Thirst [Not Recovered/Not Resolved]
  - Drug ineffective [Unknown]
  - Renal pain [Not Recovered/Not Resolved]
  - Extra dose administered [Unknown]
  - Weight increased [Unknown]

NARRATIVE: CASE EVENT DATE: 20180615
